FAERS Safety Report 7599208-6 (Version None)
Quarter: 2011Q3

REPORT INFORMATION
  Report Type: 
  Country: None (occurrence: None)
  Receive Date: 20110711
  Receipt Date: 20110223
  Transmission Date: 20111222
  Serious: No
  Sender: FDA-Public Use
  Company Number: US-BAYER-2011-017881

PATIENT
  Sex: Female

DRUGS (2)
  1. YASMIN [Suspect]
  2. LEVOTHYROXINE SODIUM [Concomitant]

REACTIONS (1)
  - WEIGHT INCREASED [None]
